FAERS Safety Report 4284854-8 (Version None)
Quarter: 2004Q1

REPORT INFORMATION
  Report Type: 
  Country: None (occurrence: None)
  Receive Date: 20040203
  Receipt Date: 20040203
  Transmission Date: 20041129
  Serious: No
  Sender: FDA-Public Use
  Company Number: None

PATIENT
  Sex: Female

DRUGS (3)
  1. RESTASIS [Suspect]
     Indication: CONJUNCTIVITIS
     Dosage: ONE DOSE QA OR BID
     Dates: start: 20031202, end: 20040106
  2. REFRESH TEARS [Concomitant]
  3. REFRESH EYE OINT [Concomitant]

REACTIONS (2)
  - CONJUNCTIVAL SCAR [None]
  - CONJUNCTIVITIS [None]
